FAERS Safety Report 23295290 (Version 1)
Quarter: 2023Q4

REPORT INFORMATION
  Report Type: Report from Study
  Country: US (occurrence: None)
  Receive Date: 20231214
  Receipt Date: 20231214
  Transmission Date: 20240109
  Serious: Yes (Other)
  Sender: FDA-Public Use
  Company Number: 2023A278027

PATIENT
  Sex: Female
  Weight: 43.5 kg

DRUGS (5)
  1. KOSELUGO [Suspect]
     Active Substance: SELUMETINIB
     Indication: Neurofibromatosis
     Route: 048
     Dates: start: 20220107
  2. CLINDAMYCIN [Concomitant]
     Active Substance: CLINDAMYCIN
  3. IBUPROFEN [Concomitant]
     Active Substance: IBUPROFEN
  4. LIDOCAINE [Concomitant]
     Active Substance: LIDOCAINE
  5. TYLENOL [Concomitant]
     Active Substance: ACETAMINOPHEN

REACTIONS (1)
  - Arnold-Chiari malformation [Recovering/Resolving]
